FAERS Safety Report 8251583-5 (Version None)
Quarter: 2012Q2

REPORT INFORMATION
  Report Type: 
  Country: None (occurrence: None)
  Receive Date: 20120402
  Receipt Date: 20120224
  Transmission Date: 20120825
  Serious: No
  Sender: FDA-Public Use
  Company Number: US-ABBOTT-12P-163-0908827-00

PATIENT
  Sex: Male
  Weight: 127.12 kg

DRUGS (5)
  1. ANDROGEL [Suspect]
     Dosage: 2.5 GRAM DAILY,  2 PUMPS
     Dates: start: 20120113
  2. GLIPIZIDE [Concomitant]
     Indication: DIABETES MELLITUS
  3. ACTOS [Concomitant]
     Indication: DIABETES MELLITUS
  4. ANDROGEL [Suspect]
     Indication: BLOOD TESTOSTERONE DECREASED
     Dosage: 5 GRAM DAILY, 4 PUMPS
     Dates: start: 20111220, end: 20120112
  5. LEVOTHYROXINE SODIUM [Concomitant]
     Indication: HYPOTHYROIDISM

REACTIONS (2)
  - TESTICULAR PAIN [None]
  - BLOOD TESTOSTERONE FREE INCREASED [None]
